FAERS Safety Report 5802387-1 (Version None)
Quarter: 2008Q3

REPORT INFORMATION
  Report Type: 
  Country: None (occurrence: None)
  Receive Date: 20080707
  Receipt Date: 20080627
  Transmission Date: 20090109
  Serious: Yes (Hospitalization)
  Sender: FDA-Public Use
  Company Number: CA-ABBOTT-08P-028-0458553-00

PATIENT
  Sex: Female
  Weight: 81.72 kg

DRUGS (1)
  1. HUMIRA [Suspect]
     Indication: RHEUMATOID ARTHRITIS
     Route: 058
     Dates: start: 20060608

REACTIONS (6)
  - ARTHRITIS [None]
  - EAR INFECTION [None]
  - INFECTION [None]
  - PHARYNGITIS [None]
  - RHINITIS [None]
  - URINARY TRACT INFECTION [None]
